FAERS Safety Report 9482199 (Version 1)
Quarter: 2013Q3

REPORT INFORMATION
  Report Type: Spontaneous
  Country: US (occurrence: US)
  Receive Date: 20130828
  Receipt Date: 20130828
  Transmission Date: 20140515
  Serious: Yes (Hospitalization)
  Sender: FDA-Public Use
  Company Number: US-JNJFOC-20130811119

PATIENT
  Age: 75 Year
  Sex: Female

DRUGS (2)
  1. LEVAQUIN [Suspect]
     Indication: BRONCHITIS
     Route: 048
     Dates: start: 20130812, end: 20130813
  2. ZITHROMAX [Concomitant]
     Indication: BRONCHITIS
     Route: 065
     Dates: start: 2013, end: 2013

REACTIONS (4)
  - Disorientation [Not Recovered/Not Resolved]
  - Hypokinesia [Not Recovered/Not Resolved]
  - Malaise [Not Recovered/Not Resolved]
  - Cardiac arrest [Recovered/Resolved]
